FAERS Safety Report 10208320 (Version 1)
Quarter: 2014Q2

REPORT INFORMATION
  Report Type: Spontaneous
  Country: US (occurrence: None)
  Receive Date: 20140528
  Receipt Date: 20140528
  Transmission Date: 20141212
  Serious: Yes (Life-Threatening)
  Sender: FDA-Public Use
  Company Number: None

PATIENT
  Age: 67 Year
  Sex: Female
  Weight: 77.11 kg

DRUGS (6)
  1. ZOLPIDEM [Suspect]
     Indication: INSOMNIA
     Dosage: 5 MG 1 PILL 1 AT BEDTIME BY MOUTH
     Route: 048
     Dates: start: 20140428, end: 20140429
  2. FOSAMAX [Concomitant]
  3. CENTRUM SILVER VITAMINS [Concomitant]
  4. ARTHRITIS PAIN RELIEVER [Concomitant]
  5. CAFFEINE TABLET [Concomitant]
  6. UNISOM SLEEP AIDE [Concomitant]

REACTIONS (2)
  - Throat tightness [None]
  - Lip swelling [None]
